FAERS Safety Report 12076331 (Version 1)
Quarter: 2016Q1

REPORT INFORMATION
  Report Type: Spontaneous
  Country: US (occurrence: US)
  Receive Date: 20160215
  Receipt Date: 20160215
  Transmission Date: 20160526
  Serious: Yes (Life-Threatening, Hospitalization, Other)
  Sender: FDA-Public Use
  Company Number: US-ROCHE-1708905

PATIENT
  Age: 96 Year
  Sex: Female

DRUGS (1)
  1. ROCEPHIN [Suspect]
     Active Substance: CEFTRIAXONE SODIUM
     Indication: URINARY TRACT INFECTION
     Route: 042

REACTIONS (7)
  - Cerebrovascular accident [Unknown]
  - Hypersensitivity [Unknown]
  - Asthenia [Unknown]
  - Peripheral swelling [Unknown]
  - Lung disorder [Unknown]
  - Tachypnoea [Unknown]
  - Respiratory arrest [Unknown]
